FAERS Safety Report 9071926 (Version 1)
Quarter: 2013Q1

REPORT INFORMATION
  Report Type: Report from Study
  Country: US (occurrence: US)
  Receive Date: 20130129
  Receipt Date: 20130129
  Transmission Date: 20140127
  Serious: No
  Sender: FDA-Public Use
  Company Number: US-ABBOTT-12P-163-0928124-00

PATIENT
  Age: 79 Year
  Sex: Female

DRUGS (17)
  1. HUMIRA 40 MG/0.8 ML PEN [Suspect]
     Indication: PSORIATIC ARTHROPATHY
     Dates: start: 20110330
  2. HUMIRA 40 MG/0.8 ML PEN [Suspect]
     Dates: start: 201201
  3. ADVAIR [Concomitant]
     Indication: ASTHMA
     Dosage: 250/50 DAILY
  4. ADVAIR [Concomitant]
     Indication: CHRONIC OBSTRUCTIVE PULMONARY DISEASE
  5. SPIRIVA DISC [Concomitant]
     Indication: ASTHMA
     Dosage: DAILY
  6. SPIRIVA DISC [Concomitant]
     Indication: CHRONIC OBSTRUCTIVE PULMONARY DISEASE
  7. MAGNESIUM OXIDE [Concomitant]
     Indication: MINERAL SUPPLEMENTATION
     Dosage: 400 MG DAILY
  8. POTASSIUM [Concomitant]
     Indication: MINERAL SUPPLEMENTATION
  9. HYDROCHLOROTHIAZIDE [Concomitant]
     Indication: HYPERTENSION
     Dosage: 25 MG DAILY
  10. BYSTOLIC [Concomitant]
     Indication: HYPERTENSION
     Dosage: 20 MG DAILY
  11. FUROSEMIDE [Concomitant]
     Indication: SWELLING
     Dosage: 20 MG DAILY
  12. VIT D [Concomitant]
     Indication: VITAMIN SUPPLEMENTATION
  13. SIMVASTATIN [Concomitant]
     Indication: PRODUCT USED FOR UNKNOWN INDICATION
  14. CRESTOR [Concomitant]
     Indication: PRODUCT USED FOR UNKNOWN INDICATION
  15. CRESTOR [Concomitant]
  16. CELEBREX [Concomitant]
     Indication: PRODUCT USED FOR UNKNOWN INDICATION
     Dosage: DAILY
  17. TRAMADOL [Concomitant]
     Indication: PRODUCT USED FOR UNKNOWN INDICATION
     Dosage: 50 MG (1 TAB), UP TO THREE TIMES PER DAY

REACTIONS (10)
  - Fatigue [Not Recovered/Not Resolved]
  - Injection site swelling [Not Recovered/Not Resolved]
  - Injection site pain [Not Recovered/Not Resolved]
  - Inappropriate schedule of drug administration [Unknown]
  - Drug ineffective [Unknown]
  - Feeling abnormal [Unknown]
  - Urinary tract infection [Unknown]
  - Depression [Not Recovered/Not Resolved]
  - Sinusitis [Unknown]
  - Muscle spasms [Unknown]
